FAERS Safety Report 9177271 (Version 1)
Quarter: 2013Q1

REPORT INFORMATION
  Report Type: Spontaneous
  Country: US (occurrence: None)
  Receive Date: 20130320
  Receipt Date: 20130320
  Transmission Date: 20140127
  Serious: No
  Sender: FDA-Public Use
  Company Number: None

PATIENT
  Age: 57 Year
  Sex: Male
  Weight: 90.7 kg

DRUGS (1)
  1. WARFARIN [Suspect]
     Indication: ATRIAL FIBRILLATION
     Dosage: 5 MG   OTHER   PO?11/09/2010  THRU  N/A
     Route: 048
     Dates: start: 20101109

REACTIONS (3)
  - Epistaxis [None]
  - International normalised ratio increased [None]
  - Haemorrhage [None]
